FAERS Safety Report 20233081 (Version 3)
Quarter: 2022Q4

REPORT INFORMATION
  Report Type: Other
  Country: US (occurrence: None)
  Receive Date: 20211227
  Receipt Date: 20221212
  Transmission Date: 20230113
  Serious: No
  Sender: FDA-Public Use
  Company Number: US-ROCHE-2989602

PATIENT
  Age: 49 Year
  Sex: Female

DRUGS (13)
  1. OCREVUS [Suspect]
     Active Substance: OCRELIZUMAB
     Indication: Multiple sclerosis
     Dosage: THEN 600 MG EVERY 6 MONTHS; STARTED AT LEAST 2.5 YEARS AGO; ?DATE OF TREATMENT: 25-JUL-2019, 07-FEB-
     Route: 042
     Dates: start: 20190711
  2. OCREVUS [Suspect]
     Active Substance: OCRELIZUMAB
     Indication: Relapsing multiple sclerosis
  3. REBIF [Concomitant]
     Active Substance: INTERFERON BETA-1A
  4. ALBUTEROL [Concomitant]
     Active Substance: ALBUTEROL
  5. DULCOLAX (BISACODYL) [Concomitant]
     Active Substance: BISACODYL
  6. ZYRTEC [Concomitant]
     Active Substance: CETIRIZINE HYDROCHLORIDE
  7. CIPRO [Concomitant]
     Active Substance: CIPROFLOXACIN HYDROCHLORIDE
  8. BENADRYL [Concomitant]
     Active Substance: DIPHENHYDRAMINE HYDROCHLORIDE
  9. NORCO [Concomitant]
     Active Substance: ACETAMINOPHEN\HYDROCODONE BITARTRATE
  10. ATIVAN [Concomitant]
     Active Substance: LORAZEPAM
  11. ZOFRAN [Concomitant]
     Active Substance: ONDANSETRON HYDROCHLORIDE
  12. LYRICA [Concomitant]
     Active Substance: PREGABALIN
  13. ZANAFLEX [Concomitant]
     Active Substance: TIZANIDINE HYDROCHLORIDE

REACTIONS (2)
  - COVID-19 [Unknown]
  - Fibromyalgia [Unknown]
